FAERS Safety Report 9179797 (Version 1)
Quarter: 2012Q4

REPORT INFORMATION
  Report Type: 
  Country: DK (occurrence: DK)
  Receive Date: 20121029
  Receipt Date: 20121029
  Transmission Date: 20130627
  Serious: Yes (Hospitalization)
  Sender: FDA-Public Use
  Company Number: DK-ROCHE-1149265

PATIENT
  Age: 89 None
  Sex: Female

DRUGS (9)
  1. BONVIVA [Suspect]
     Indication: OSTEOPOROSIS
     Route: 048
     Dates: end: 20120514
  2. RAMIPRIL [Suspect]
     Indication: BLOOD PRESSURE
     Route: 048
     Dates: end: 20120514
  3. FELODIPINE [Suspect]
     Indication: BLOOD PRESSURE
     Route: 048
     Dates: end: 20120514
  4. FURIX [Concomitant]
     Route: 065
  5. KALEORID [Concomitant]
     Route: 065
  6. METFORMIN HYDROCHLORIDE [Concomitant]
     Route: 065
  7. PAMOL [Concomitant]
     Route: 065
  8. UNIKALK SILVER [Concomitant]
     Route: 065
  9. NORSPAN [Concomitant]
     Route: 065

REACTIONS (4)
  - Hyponatraemia [Recovered/Resolved]
  - Nausea [Recovered/Resolved]
  - Decreased appetite [Recovered/Resolved]
  - Blood glucose abnormal [None]
